FAERS Safety Report 8090856-6 (Version None)
Quarter: 2012Q1

REPORT INFORMATION
  Report Type: 
  Country: None (occurrence: None)
  Receive Date: 20120131
  Receipt Date: 20120119
  Transmission Date: 20120608
  Serious: Yes (Other)
  Sender: FDA-Public Use
  Company Number: US-JNJFOC-20120109288

PATIENT
  Sex: Female
  Weight: 83.46 kg

DRUGS (5)
  1. ASPIRIN [Concomitant]
     Indication: PROPHYLAXIS
     Route: 048
     Dates: start: 20080101
  2. MOTRIN [Concomitant]
     Indication: PAIN
     Route: 048
     Dates: start: 20090101
  3. SYNTHROID [Concomitant]
     Indication: HYPOTHYROIDISM
     Route: 048
     Dates: start: 19700101
  4. REMICADE [Suspect]
     Indication: PSORIATIC ARTHROPATHY
     Route: 042
     Dates: start: 20111001, end: 20111229
  5. REMICADE [Suspect]
     Indication: RHEUMATOID ARTHRITIS
     Route: 042
     Dates: start: 20111001, end: 20111229

REACTIONS (8)
  - FALL [None]
  - SYNOVIAL CYST [None]
  - BRONCHITIS [None]
  - IMMUNODEFICIENCY [None]
  - LYMPHADENOPATHY [None]
  - MALIGNANT MELANOMA [None]
  - BALANCE DISORDER [None]
  - PNEUMONIA [None]
